FAERS Safety Report 19841263 (Version 1)
Quarter: 2021Q3

REPORT INFORMATION
  Report Type: Spontaneous
  Country: FR (occurrence: FR)
  Receive Date: 20210915
  Receipt Date: 20210915
  Transmission Date: 20211014
  Serious: Yes (Hospitalization, Other)
  Sender: FDA-Public Use
  Company Number: NVSC2021FR202918

PATIENT
  Age: 59 Year
  Sex: Male
  Weight: 64 kg

DRUGS (16)
  1. AMOXICILLIN. [Suspect]
     Active Substance: AMOXICILLIN
     Indication: PRODUCT USED FOR UNKNOWN INDICATION
     Dosage: 1 G, TID
     Route: 065
  2. FONDAPARINUX SODIUM. [Suspect]
     Active Substance: FONDAPARINUX SODIUM
     Indication: PRODUCT USED FOR UNKNOWN INDICATION
     Dosage: 2.5 MG, QD
     Route: 065
  3. NUTRYELT [Concomitant]
     Active Substance: IRON\MINERALS\POTASSIUM IOD\SODIUM FLUORIDE\SODIUM MOLYBDATE\SODIUM SELENITE\ZINC
     Indication: PRODUCT USED FOR UNKNOWN INDICATION
     Dosage: UNK
     Route: 065
  4. NICARDIPINE HYDROCHLORIDE. [Concomitant]
     Active Substance: NICARDIPINE HYDROCHLORIDE
     Indication: PRODUCT USED FOR UNKNOWN INDICATION
     Dosage: 20 UNK, TID
     Route: 065
  5. ATARAX [Suspect]
     Active Substance: HYDROXYZINE HYDROCHLORIDE
     Indication: PRODUCT USED FOR UNKNOWN INDICATION
     Dosage: 50 UNK, BID
     Route: 065
  6. CERNEVIT [Concomitant]
     Active Substance: VITAMINS
     Indication: PRODUCT USED FOR UNKNOWN INDICATION
     Dosage: UNK
     Route: 065
  7. GLICLAZIDE [Suspect]
     Active Substance: GLICLAZIDE
     Indication: PRODUCT USED FOR UNKNOWN INDICATION
     Dosage: UNK
     Route: 065
  8. LOVENOX [Suspect]
     Active Substance: ENOXAPARIN SODIUM
     Indication: PRODUCT USED FOR UNKNOWN INDICATION
     Dosage: UNK
     Route: 065
  9. EUCREAS [Concomitant]
     Active Substance: METFORMIN HYDROCHLORIDE\VILDAGLIPTIN
     Indication: PRODUCT USED FOR UNKNOWN INDICATION
     Dosage: 50/100 MG UNK
     Route: 065
  10. GLUCIDION G [Concomitant]
     Active Substance: DEXTROSE\POTASSIUM CHLORIDE\SODIUM CHLORIDE
     Indication: PRODUCT USED FOR UNKNOWN INDICATION
     Dosage: 500 ML, QD (500ML/24H)
     Route: 065
  11. ESOMEPRAZOLE MAGNESIUM. [Suspect]
     Active Substance: ESOMEPRAZOLE MAGNESIUM
     Indication: PRODUCT USED FOR UNKNOWN INDICATION
     Dosage: 40 MG, QD
     Route: 065
  12. INSULIN GLARGINE [Suspect]
     Active Substance: INSULIN GLARGINE
     Indication: PRODUCT USED FOR UNKNOWN INDICATION
     Dosage: 100 U/ML
     Route: 065
  13. EUPRESSYL [Concomitant]
     Active Substance: URAPIDIL
     Indication: PRODUCT USED FOR UNKNOWN INDICATION
     Dosage: 30 MG, TID
     Route: 065
  14. VITAMIN B1 AND B6 [Concomitant]
     Active Substance: PYRIDOXINE HYDROCHLORIDE\THIAMINE HYDROCHLORIDE
     Indication: PRODUCT USED FOR UNKNOWN INDICATION
     Dosage: UNK
     Route: 065
  15. DEXAMETHASONE. [Suspect]
     Active Substance: DEXAMETHASONE
     Indication: PRODUCT USED FOR UNKNOWN INDICATION
     Dosage: UNK
     Route: 065
  16. BEVACIZUMAB. [Suspect]
     Active Substance: BEVACIZUMAB
     Indication: PRODUCT USED FOR UNKNOWN INDICATION
     Dosage: 442.5 MG
     Route: 042
     Dates: start: 20210502

REACTIONS (7)
  - Abdominal pain [Unknown]
  - Pain in extremity [Unknown]
  - Arthralgia [Unknown]
  - Muscular weakness [Unknown]
  - Pyelocaliectasis [Unknown]
  - Haematoma muscle [Unknown]
  - Ureteric compression [Unknown]

NARRATIVE: CASE EVENT DATE: 20210522
